FAERS Safety Report 4452149-5 (Version None)
Quarter: 2004Q3

REPORT INFORMATION
  Report Type: 
  Country: None (occurrence: None)
  Receive Date: 20040917
  Receipt Date: 20040907
  Transmission Date: 20050211
  Serious: Yes (Other)
  Sender: FDA-Public Use
  Company Number: DE-JNJFOC-20040903190

PATIENT
  Age: 84 Year
  Sex: Female

DRUGS (1)
  1. RISPERDAL CONSTA [Suspect]
     Indication: HALLUCINATION
     Route: 030

REACTIONS (2)
  - DRUG INEFFECTIVE [None]
  - GLAUCOMA [None]
